FAERS Safety Report 13090864 (Version 4)
Quarter: 2017Q3

REPORT INFORMATION
  Report Type: Spontaneous
  Country: US (occurrence: US)
  Receive Date: 20170106
  Receipt Date: 20170707
  Transmission Date: 20171127
  Serious: Yes (Other)
  Sender: FDA-Public Use
  Company Number: PHEH2016US034217

PATIENT
  Sex: Female
  Weight: 104.76 kg

DRUGS (4)
  1. ZOFRAN [Suspect]
     Active Substance: ONDANSETRON HYDROCHLORIDE
     Indication: VOMITING IN PREGNANCY
     Dosage: 04 MG, UNK
     Route: 042
     Dates: start: 20131126, end: 20140318
  2. ONDANSETRONE RANBAXY [Suspect]
     Active Substance: ONDANSETRON HYDROCHLORIDE
     Indication: VOMITING IN PREGNANCY
     Dosage: 8 MG, Q8H
     Route: 065
     Dates: start: 20131202, end: 20131203
  3. ONDANSETRON TEVA [Suspect]
     Active Substance: ONDANSETRON
     Indication: VOMITING IN PREGNANCY
     Dosage: 4 MG, Q8H
     Route: 065
     Dates: start: 20131201
  4. ONDANSETRON AUROBINDO [Suspect]
     Active Substance: ONDANSETRON HYDROCHLORIDE
     Indication: VOMITING IN PREGNANCY
     Dosage: 4 MG, Q4H
     Route: 065
     Dates: start: 20131202

REACTIONS (7)
  - Maternal exposure during pregnancy [Unknown]
  - Emotional distress [Unknown]
  - Abdominal pain [Unknown]
  - Pyrexia [Unknown]
  - Gestational hypertension [Unknown]
  - Injury [Unknown]
  - Product use in unapproved indication [Unknown]
